FAERS Safety Report 6435931-4 (Version None)
Quarter: 2009Q4

REPORT INFORMATION
  Report Type: 
  Country: None (occurrence: None)
  Receive Date: 20091102
  Receipt Date: 20091020
  Transmission Date: 20100525
  Serious: Yes (Death)
  Sender: FDA-Public Use
  Company Number: THYM-1001215

PATIENT
  Age: 39 Year
  Sex: Male
  Weight: 63 kg

DRUGS (8)
  1. THYMOGLOBULIN [Suspect]
     Indication: ACUTE GRAFT VERSUS HOST DISEASE
     Dosage: 1.25 MG/KG, QD, INTRAVENOUS
     Route: 042
     Dates: start: 20090825, end: 20090829
  2. THYMOGLOBULIN [Suspect]
  3. STEROIDS [Concomitant]
  4. PLASMAPHAERESIS [Concomitant]
  5. METHYLPREDNISOLONE SODIUM SUCCINATE [Concomitant]
  6. FILGRASTIM (FILGRASTIM) [Concomitant]
  7. AMPHOTERICIN B [Concomitant]
  8. ACYCLOVIR [Concomitant]

REACTIONS (2)
  - PNEUMONIA [None]
  - SEPTIC SHOCK [None]
